FAERS Safety Report 22356216 (Version 1)
Quarter: 2023Q2

REPORT INFORMATION
  Report Type: Spontaneous
  Country: CN (occurrence: CN)
  Receive Date: 20230523
  Receipt Date: 20230523
  Transmission Date: 20230721
  Serious: Yes (Hospitalization)
  Sender: FDA-Public Use
  Company Number: CN-BAYER-2023A067826

PATIENT
  Age: 63 Year
  Sex: Female
  Weight: 66 kg

DRUGS (2)
  1. STIVARGA [Suspect]
     Active Substance: REGORAFENIB
     Indication: Colon cancer recurrent
     Dosage: 160 MG, QD
     Route: 048
     Dates: start: 20221126, end: 20230426
  2. STIVARGA [Suspect]
     Active Substance: REGORAFENIB
     Indication: Targeted cancer therapy

REACTIONS (3)
  - Peripheral swelling [None]
  - Pain in extremity [None]
  - Rash papular [Recovering/Resolving]

NARRATIVE: CASE EVENT DATE: 20230425
